FAERS Safety Report 11885656 (Version 6)
Quarter: 2018Q3

REPORT INFORMATION
  Report Type: Spontaneous
  Country: US (occurrence: US)
  Receive Date: 20160104
  Receipt Date: 20180830
  Transmission Date: 20181010
  Serious: Yes (Hospitalization, Other)
  Sender: FDA-Public Use
  Company Number: US-PFIZER INC-2015477822

PATIENT
  Age: 70 Year
  Sex: Female
  Weight: 68 kg

DRUGS (12)
  1. FENOFIBRATE. [Concomitant]
     Active Substance: FENOFIBRATE
     Indication: ARTERIAL OCCLUSIVE DISEASE
     Dosage: 150 MG, 1X/DAY
  2. MELOXICAM. [Concomitant]
     Active Substance: MELOXICAM
     Indication: PAIN
     Dosage: 15 MG, 1X/DAY
  3. XELJANZ [Suspect]
     Active Substance: TOFACITINIB CITRATE
     Indication: RHEUMATOID ARTHRITIS
     Dosage: 5 MG, 2X/DAY
     Route: 048
     Dates: start: 201501
  4. SYNTHROID [Concomitant]
     Active Substance: LEVOTHYROXINE SODIUM
     Indication: THYROID DISORDER
     Dosage: 25 UG, 1X/DAY (ONE TABLET IN MORNING)
  5. MORPHINE SULFATE. [Concomitant]
     Active Substance: MORPHINE SULFATE
     Indication: BACK PAIN
     Dosage: 15 MG, 2X/DAY (ONE TABLET EVERY 12 HOURS)
  6. XELJANZ [Suspect]
     Active Substance: TOFACITINIB CITRATE
     Indication: OSTEOARTHRITIS
     Dosage: 10 MG, 2X/DAY (TWO 5MG TABLETS IN MORNING AND TWO 5MG TABLETS AT NIGHT)[5 MG; 2 TABLETS TWICE DAILY]
     Route: 048
     Dates: start: 201711
  7. HYDROCODONE BITARTRATE AND ACETAMINOPHEN [Concomitant]
     Active Substance: ACETAMINOPHEN\HYDROCODONE BITARTRATE
     Indication: PAIN
     Dosage: UNK, AS NEEDED (7.5?325 TABLET ONET EVERY 12 HOURS AS NEEDED)
  8. VENLAFAXINE [Concomitant]
     Active Substance: VENLAFAXINE HYDROCHLORIDE
     Indication: DEPRESSION
     Dosage: 75 MG, 2X/DAY (75MG TABLET ONCE IN MORNING AND 75MG AT NIGHT)
  9. OMEPRAZOLE. [Concomitant]
     Active Substance: OMEPRAZOLE
     Indication: GASTROOESOPHAGEAL REFLUX DISEASE
     Dosage: 40 MG, 1X/DAY (ONE IN THE MORNING)
  10. WELLBUTRIN XL [Concomitant]
     Active Substance: BUPROPION HYDROCHLORIDE
     Indication: DEPRESSION
     Dosage: 300 MG, 1X/DAY
  11. XELJANZ [Suspect]
     Active Substance: TOFACITINIB CITRATE
     Indication: OSTEOGENESIS IMPERFECTA
  12. SIMVASTATIN. [Concomitant]
     Active Substance: SIMVASTATIN
     Indication: ARTERIAL OCCLUSIVE DISEASE
     Dosage: 20 MG, 1X/DAY

REACTIONS (13)
  - Intentional product use issue [Unknown]
  - Dizziness [Unknown]
  - Intentional product misuse [Unknown]
  - Peripheral swelling [Unknown]
  - Product use issue [Unknown]
  - Confusional state [Unknown]
  - Wrist deformity [Unknown]
  - Drug dispensing error [Unknown]
  - Lower limb fracture [Unknown]
  - Fall [Recovered/Resolved]
  - Wrist fracture [Unknown]
  - Upper limb fracture [Unknown]
  - Mental impairment [Unknown]

NARRATIVE: CASE EVENT DATE: 201512
